FAERS Safety Report 7371837-4 (Version None)
Quarter: 2011Q1

REPORT INFORMATION
  Report Type: 
  Country: None (occurrence: None)
  Receive Date: 20110324
  Receipt Date: 20110303
  Transmission Date: 20110831
  Serious: No
  Sender: FDA-Public Use
  Company Number: US-B.I. PHARMACEUTICALS,INC./RIDGEFIELD-2011-BP-07303BP

PATIENT
  Age: 66 Year
  Sex: Male

DRUGS (5)
  1. PAIN KILLER [Concomitant]
  2. BETA BLOCKERS [Concomitant]
  3. PRADAXA [Suspect]
     Indication: ATRIAL FIBRILLATION
     Dosage: 300 MG
     Route: 048
     Dates: start: 20110301
  4. PRADAXA [Suspect]
     Indication: CEREBROVASCULAR ACCIDENT PROPHYLAXIS
  5. ANTIBIOTICS [Concomitant]

REACTIONS (1)
  - OESOPHAGEAL PAIN [None]
